FAERS Safety Report 5471937-X (Version None)
Quarter: 2007Q3

REPORT INFORMATION
  Report Type: 
  Country: None (occurrence: None)
  Receive Date: 20070928
  Receipt Date: 20070918
  Transmission Date: 20080115
  Serious: Yes (Hospitalization, Other)
  Sender: FDA-Public Use
  Company Number: US-PFIZER INC-2007069486

PATIENT
  Sex: Female
  Weight: 70.454 kg

DRUGS (5)
  1. LYRICA [Suspect]
     Indication: PAIN
     Dates: start: 20070401, end: 20070506
  2. PERCOCET [Concomitant]
  3. VITAMIN B-12 [Concomitant]
  4. ANALGESICS [Concomitant]
  5. DRUG, UNSPECIFIED [Concomitant]

REACTIONS (6)
  - ABNORMAL DREAMS [None]
  - DYSSTASIA [None]
  - INTENTIONAL DRUG MISUSE [None]
  - ISCHAEMIC STROKE [None]
  - MUSCULAR WEAKNESS [None]
  - OVERDOSE [None]
